FAERS Safety Report 6204234-5 (Version None)
Quarter: 2009Q2

REPORT INFORMATION
  Report Type: 
  Country: None (occurrence: None)
  Receive Date: 20090527
  Receipt Date: 20090523
  Transmission Date: 20091009
  Serious: Yes (Death, Other)
  Sender: FDA-Public Use
  Company Number: US-ELI_LILLY_AND_COMPANY-US200903004923

PATIENT
  Age: 37 Year
  Sex: Male

DRUGS (2)
  1. XIGRIS [Suspect]
     Indication: SEPSIS
     Dosage: UNK, UNK
     Dates: start: 20090318
  2. ANTIBIOTICS [Concomitant]

REACTIONS (3)
  - MULTI-ORGAN FAILURE [None]
  - PUPIL FIXED [None]
  - SEPSIS [None]
